FAERS Safety Report 11973118 (Version 3)
Quarter: 2016Q2

REPORT INFORMATION
  Report Type: Report from Study
  Country: US (occurrence: US)
  Receive Date: 20160128
  Receipt Date: 20160411
  Transmission Date: 20160815
  Serious: Yes (Hospitalization)
  Sender: FDA-Public Use
  Company Number: PHEH2016US001524

PATIENT
  Sex: Female
  Weight: 97.51 kg

DRUGS (1)
  1. GILENYA [Suspect]
     Active Substance: FINGOLIMOD HYDROCHLORIDE
     Indication: MULTIPLE SCLEROSIS
     Dosage: 0.5 MG, QD
     Route: 048
     Dates: start: 20151104

REACTIONS (9)
  - Multiple sclerosis [Unknown]
  - Hypoaesthesia [Unknown]
  - Visual impairment [Unknown]
  - Aphasia [Unknown]
  - Mental disorder [Unknown]
  - Memory impairment [Unknown]
  - Mobility decreased [Unknown]
  - White blood cell count decreased [Unknown]
  - Speech disorder [Unknown]
